FAERS Safety Report 9209773 (Version 1)
Quarter: 2013Q1

REPORT INFORMATION
  Report Type: Spontaneous
  Country: US (occurrence: None)
  Receive Date: 20120820
  Receipt Date: 20120820
  Transmission Date: 20140127
  Serious: No
  Sender: FDA-Public Use
  Company Number: 1000030187

PATIENT
  Age: 68 Year
  Sex: Female

DRUGS (16)
  1. VIIBRYD (VILAZODONE) (10 MILLIGRAM, TABLETS) [Suspect]
     Indication: ANXIETY
     Route: 048
     Dates: start: 201203
  2. LOPRESSOR (METOPOROLOL TARTRATE) [Concomitant]
  3. LOSARTAN (LOSARTAN) [Concomitant]
  4. HUMULIN R (INSULIN HUMAN) [Concomitant]
  5. SINGULAIR [Concomitant]
  6. SYNTHROID (LEVOTHYROXINE SODIUM) [Concomitant]
  7. DEXILANT (DEXLANSOPRAZOLE) [Concomitant]
  8. LOVAZA (OMEGA 3) MARINE TRIGLYCERIDES [Concomitant]
  9. PRAVASTATIN (PRAVASTATIN) [Concomitant]
  10. SPIRONOLACTONE (SPIRONOLACTONE) [Concomitant]
  11. TUSSIONEX (HYDROCODONE, CHLORPHENIRAMINE) [Concomitant]
  12. XANAX (ALPRAZOLAM) [Concomitant]
  13. CALCIUM (CALCIUM) [Concomitant]
  14. POTASSIUM (POTASSIUM) [Concomitant]
  15. ASPIRIN (ACETYLSALICYLIC ACID) [Concomitant]
  16. TRAMADOL (TRAMADOL) [Concomitant]

REACTIONS (2)
  - Pruritus [None]
  - Off label use [None]
